FAERS Safety Report 22001897 (Version 2)
Quarter: 2023Q1

REPORT INFORMATION
  Report Type: Spontaneous
  Country: US (occurrence: US)
  Receive Date: 20230216
  Receipt Date: 20230226
  Transmission Date: 20230417
  Serious: No
  Sender: FDA-Public Use
  Company Number: US-JNJFOC-20230220223

PATIENT

DRUGS (2)
  1. TREMFYA [Suspect]
     Active Substance: GUSELKUMAB
     Indication: Product used for unknown indication
     Route: 065
  2. TREMFYA [Suspect]
     Active Substance: GUSELKUMAB

REACTIONS (3)
  - Product leakage [Unknown]
  - Product administration error [Unknown]
  - Product dose omission issue [Unknown]
